FAERS Safety Report 22734836 (Version 2)
Quarter: 2024Q3

REPORT INFORMATION
  Report Type: Spontaneous
  Country: US (occurrence: US)
  Receive Date: 20230721
  Receipt Date: 20240819
  Transmission Date: 20241016
  Serious: No
  Sender: ENDO
  Company Number: ENDB23-01957

PATIENT
  Age: 33 Year
  Sex: Female

DRUGS (2)
  1. QWO [Suspect]
     Active Substance: COLLAGENASE CLOSTRIDIUM HISTOLYTICUM-AAES
     Indication: Product used for unknown indication
     Dosage: UNK UNKNOWN, UNKNOWN (ONE DOZEN INJECTIONS ON EACH SIDE OF THEIR BUTTOCK AND LATERAL THIGHS)
     Route: 051
     Dates: start: 20221018
  2. QWO [Suspect]
     Active Substance: COLLAGENASE CLOSTRIDIUM HISTOLYTICUM-AAES
     Dosage: UNK UNKNOWN, UNKNOWN (ONE DOZEN INJECTIONS ON EACH SIDE OF THEIR BUTTOCK AND LATERAL THIGHS)
     Route: 065
     Dates: start: 20221109

REACTIONS (2)
  - Contusion [Not Recovered/Not Resolved]
  - Off label use [Unknown]

NARRATIVE: CASE EVENT DATE: 20221018
